FAERS Safety Report 8932125 (Version 1)
Quarter: 2012Q4

REPORT INFORMATION
  Report Type: 
  Country: JP (occurrence: JP)
  Receive Date: 20121128
  Receipt Date: 20121128
  Transmission Date: 20130627
  Serious: Yes (Hospitalization)
  Sender: FDA-Public Use
  Company Number: JP-PFIZER INC-2012293541

PATIENT
  Age: 64 Year
  Sex: Male

DRUGS (11)
  1. HALCION [Suspect]
  2. QUAZEPAM [Suspect]
  3. PHENOBARBITAL [Concomitant]
  4. CARBAMAZEPINE [Concomitant]
  5. DIAZEPAM [Concomitant]
  6. CLONAZEPAM [Concomitant]
  7. TRYPTANOL [Concomitant]
  8. TRAZODONE HYDROCHLORIDE [Concomitant]
  9. TIAPRIDE [Concomitant]
  10. HALOPERIDOL [Concomitant]
  11. QUETIAPINE FUMARATE [Concomitant]

REACTIONS (2)
  - Somnolence [Unknown]
  - Dysphagia [Unknown]
